FAERS Safety Report 4577152-6 (Version None)
Quarter: 2005Q1

REPORT INFORMATION
  Report Type: 
  Country: None (occurrence: None)
  Receive Date: 20050208
  Receipt Date: 20050126
  Transmission Date: 20050727
  Serious: Yes (Other)
  Sender: FDA-Public Use
  Company Number: 2004020392

PATIENT
  Age: 37 Year
  Sex: Female
  Weight: 66.6788 kg

DRUGS (9)
  1. NARDIL [Suspect]
     Indication: DEPRESSION
  2. PROCARDIA XL [Suspect]
     Indication: HYPERTENSION
     Dosage: 30 MG
     Dates: start: 20040401
  3. CARDURA [Suspect]
     Indication: ESSENTIAL HYPERTENSION
     Dosage: 2 MG (2 MG, 1 IN1 D), ORAL
     Route: 048
     Dates: start: 20040501
  4. TRIMIPRAMINE MALEATE [Suspect]
     Indication: ILL-DEFINED DISORDER
     Dosage: ORAL
     Route: 048
  5. LITHIUM  LITHIUM (LITHIUM CARBONATE) [Concomitant]
  6. LEVOTHYROXINE SODIUM [Concomitant]
  7. ALPRAZOLAM (ALPRAZOLAM) [Concomitant]
  8. BETHANECHOL(BETHANECHOL) [Concomitant]
  9. FUROSEMIDE [Concomitant]

REACTIONS (23)
  - ALANINE AMINOTRANSFERASE INCREASED [None]
  - ANXIETY [None]
  - ARTHRALGIA [None]
  - ASPARTATE AMINOTRANSFERASE INCREASED [None]
  - ASTHENIA [None]
  - BLOOD ALKALINE PHOSPHATASE INCREASED [None]
  - CYSTITIS [None]
  - DEPRESSION [None]
  - DRUG INTERACTION [None]
  - ELECTROCONVULSIVE THERAPY [None]
  - FLUSHING [None]
  - HEADACHE [None]
  - HYPERTENSION [None]
  - INFLUENZA [None]
  - LIVER FUNCTION TEST ABNORMAL [None]
  - MOOD ALTERED [None]
  - MYALGIA [None]
  - PALPITATIONS [None]
  - PANIC ATTACK [None]
  - PYREXIA [None]
  - RED BLOOD CELL SEDIMENTATION RATE INCREASED [None]
  - SENSATION OF FOREIGN BODY [None]
  - URINARY RETENTION [None]
